FAERS Safety Report 9835293 (Version 2)
Quarter: 2014Q2

REPORT INFORMATION
  Report Type: Spontaneous
  Country: US (occurrence: US)
  Receive Date: 20140122
  Receipt Date: 20140424
  Transmission Date: 20141212
  Serious: No
  Sender: FDA-Public Use
  Company Number: US-BRISTOL-MYERS SQUIBB COMPANY-19922186

PATIENT
  Age: 76 Year
  Sex: Female
  Weight: 61.68 kg

DRUGS (10)
  1. ELIQUIS [Suspect]
     Indication: ATRIAL FIBRILLATION
     Dates: start: 20131205
  2. SOTALOL [Concomitant]
  3. OMEPRAZOLE [Concomitant]
  4. PREMARIN [Concomitant]
  5. MULTIVITAMIN [Concomitant]
  6. VITAMIN C [Concomitant]
  7. VITAMIN D [Concomitant]
  8. ZINC [Concomitant]
  9. CALCIUM [Concomitant]
  10. CALCIUM +  MAGNESIUM [Concomitant]

REACTIONS (1)
  - Headache [Recovering/Resolving]
